FAERS Safety Report 8180977-1 (Version None)
Quarter: 2012Q1

REPORT INFORMATION
  Report Type: 
  Country: None (occurrence: None)
  Receive Date: 20120302
  Receipt Date: 20120225
  Transmission Date: 20120608
  Serious: No
  Sender: FDA-Public Use
  Company Number: US-BAYER-2012-020566

PATIENT

DRUGS (3)
  1. IBUPROFEN TABLETS [Suspect]
     Indication: GASTROENTERITIS VIRAL
     Dosage: 1000 MG, ONCE
     Dates: start: 20120224
  2. ALEVE (CAPLET) [Suspect]
     Indication: GASTROENTERITIS VIRAL
     Dosage: 660 MG, ONCE
     Route: 048
     Dates: start: 20120224
  3. SUDAPHEDRINE [Concomitant]
     Indication: GASTROENTERITIS VIRAL
     Dosage: 200 MG, ONCE
     Route: 048
     Dates: start: 20120224

REACTIONS (1)
  - NO ADVERSE EVENT [None]
